FAERS Safety Report 9641914 (Version 2)
Quarter: 2013Q4

REPORT INFORMATION
  Report Type: Spontaneous
  Country: US (occurrence: US)
  Receive Date: 20131023
  Receipt Date: 20131125
  Transmission Date: 20140711
  Serious: Yes (Other)
  Sender: FDA-Public Use
  Company Number: CHPA2013US015772

PATIENT
  Age: 69 Year
  Sex: Female

DRUGS (4)
  1. GAS-X EXTSTR CHEW TABS PEPPERMINT CREME [Suspect]
     Indication: FLATULENCE
     Dosage: 2 DF, ONCE/SINGLE
     Route: 048
     Dates: start: 20131015, end: 20131015
  2. GAS-X EXTSTR CHEW TABS PEPPERMINT CREME [Suspect]
     Indication: ABDOMINAL DISTENSION
     Dosage: UNK, UNK
     Route: 048
  3. SAVELLA [Suspect]
     Indication: RHEUMATOID ARTHRITIS
     Dosage: 25 MG, QD
     Route: 048
     Dates: start: 2013
  4. LAXATIVE [Concomitant]
     Indication: DIARRHOEA
     Dosage: 2 DF, ONCE/SINGLE
     Route: 048
     Dates: start: 20131014, end: 20131014

REACTIONS (10)
  - Palatal oedema [Recovered/Resolved]
  - Lip swelling [Recovered/Resolved]
  - Swollen tongue [Recovered/Resolved]
  - Oedema mouth [Recovered/Resolved]
  - Eye swelling [Recovered/Resolved]
  - Oral discomfort [Recovered/Resolved]
  - Hypersensitivity [Recovered/Resolved]
  - Feeling drunk [Recovered/Resolved]
  - Dysarthria [Recovered/Resolved]
  - Dysstasia [Recovered/Resolved]
